FAERS Safety Report 7457497-2 (Version None)
Quarter: 2011Q2

REPORT INFORMATION
  Report Type: 
  Country: None (occurrence: None)
  Receive Date: 20110504
  Receipt Date: 20110419
  Transmission Date: 20111010
  Serious: Yes (Life-Threatening, Other)
  Sender: FDA-Public Use
  Company Number: AU-CELGENEUS-008-21880-11021301

PATIENT
  Sex: Female

DRUGS (6)
  1. DEXAMETHASONE [Concomitant]
     Route: 065
     Dates: start: 20080101
  2. REVLIMID [Suspect]
     Route: 048
     Dates: start: 20080417, end: 20090324
  3. TEMAZEPAM [Concomitant]
     Route: 065
  4. MOBIC [Concomitant]
     Route: 065
  5. ZOMETA [Concomitant]
     Route: 065
     Dates: start: 20080101
  6. MODURETIC 5-50 [Concomitant]
     Route: 065

REACTIONS (1)
  - OVARIAN CANCER [None]
